FAERS Safety Report 7597090-4 (Version None)
Quarter: 2011Q3

REPORT INFORMATION
  Report Type: 
  Country: None (occurrence: None)
  Receive Date: 20110708
  Receipt Date: 20110629
  Transmission Date: 20111222
  Serious: Yes (Death)
  Sender: FDA-Public Use
  Company Number: US-ABBOTT-11P-163-0835339-01

PATIENT
  Sex: Male

DRUGS (29)
  1. KETOROLAC TROMETHAMINE [Concomitant]
     Indication: NAUSEA
     Dates: start: 20100622, end: 20100626
  2. PROTONIX [Concomitant]
     Indication: GASTROOESOPHAGEAL REFLUX DISEASE
     Dates: start: 20090411, end: 20090903
  3. REGLAN [Concomitant]
     Indication: NAUSEA
     Dosage: TID PRN
     Dates: start: 20090521, end: 20090608
  4. LORAZEPAM [Concomitant]
     Indication: ANXIETY
     Dosage: QID, PRN
     Dates: start: 20100622, end: 20100716
  5. PROMETHAZINE [Concomitant]
     Indication: NAUSEA
     Dosage: QHS PRN
     Dates: start: 20090521, end: 20090608
  6. OMEPRAZOLE [Concomitant]
     Indication: GASTROOESOPHAGEAL REFLUX DISEASE
     Dates: start: 20090108, end: 20090303
  7. HUMIRA [Suspect]
     Indication: CROHN'S DISEASE
     Dosage: 160 MG (BASELINE)/80 MG (WEEK 2)
     Route: 058
     Dates: start: 20090806
  8. PENTASA [Concomitant]
     Indication: CROHN'S DISEASE
     Dates: start: 20090608, end: 20090903
  9. PRILOSEC [Concomitant]
     Indication: GASTROOESOPHAGEAL REFLUX DISEASE
     Dates: start: 20090903
  10. THORAZINE [Concomitant]
     Indication: HICCUPS
     Dosage: TID, PRN
     Dates: start: 20100707, end: 20100710
  11. LOVENOX [Concomitant]
     Indication: THROMBOSIS PROPHYLAXIS
     Dates: start: 20100623, end: 20100716
  12. SOLUTIONS FOR PARENTERAL NUTRITION [Concomitant]
     Indication: PARENTERAL NUTRITION
     Dosage: AS DIRECTED
     Dates: start: 20100704, end: 20100714
  13. METRONIDAZOLE [Concomitant]
     Indication: PAIN
     Dosage: 1 - 2 MG
     Dates: start: 20100622, end: 20100704
  14. MULTI-VITAMIN [Concomitant]
     Indication: MEDICAL DIET
     Dosage: AS DIRECTED
     Dates: start: 20090903
  15. MORPHINE SULFATE [Concomitant]
     Indication: PAIN
     Dosage: 1 - 2 MG Q2 HRS PRN
     Dates: start: 20100622, end: 20100702
  16. CIPROFLOXACIN HCL [Concomitant]
     Indication: CROHN'S DISEASE
     Dates: start: 20100622, end: 20100702
  17. POTASSIUM CHLORIDE [Concomitant]
     Indication: HYPOKALAEMIA
     Dates: start: 20100622, end: 20100705
  18. ULTRAM [Concomitant]
     Indication: PROCEDURAL PAIN
     Dosage: BID PRN
     Dates: start: 20090411, end: 20090415
  19. METOCLOPRAMIDE [Concomitant]
     Indication: NAUSEA
     Dates: start: 20100630, end: 20100702
  20. PROMETHAZINE [Concomitant]
     Dosage: QID PRN
     Dates: start: 20100622, end: 20100713
  21. DARVOCET [Concomitant]
     Indication: PROCEDURAL PAIN
     Dosage: 1000/65 MG
     Dates: start: 20090415
  22. ZOFRAN [Concomitant]
     Indication: NAUSEA
     Dates: start: 20100702, end: 20100716
  23. ZOFRAN [Concomitant]
     Dosage: QID PRN
  24. SYMAX [Concomitant]
     Indication: ABDOMINAL PAIN
     Dates: start: 20090903
  25. PENTASA [Concomitant]
     Dates: start: 20090903
  26. CIPROFLOXACIN [Concomitant]
     Indication: WOUND INFECTION
     Dates: start: 20090715, end: 20090725
  27. FOLIC ACID [Concomitant]
     Indication: MEDICAL DIET
     Dates: start: 20090427
  28. CALCIUM CARBONATE [Concomitant]
     Indication: MEDICAL DIET
     Dates: start: 20090903
  29. OXYCODONE HCL [Concomitant]
     Indication: PROCEDURAL PAIN
     Dosage: 5 - 10 MG Q 3 HRS, PRN
     Dates: start: 20100713, end: 20100716

REACTIONS (1)
  - DEATH [None]
